FAERS Safety Report 10913873 (Version 1)
Quarter: 2015Q1

REPORT INFORMATION
  Report Type: Spontaneous
  Country: TR (occurrence: None)
  Receive Date: 20150310
  Receipt Date: 20150310
  Transmission Date: 20150721
  Serious: Yes (Hospitalization, Other)
  Sender: FDA-Public Use
  Company Number: TR-ZYDUS-006839

PATIENT
  Age: 38 Year
  Sex: Male

DRUGS (2)
  1. RISPERDON [Concomitant]
  2. VALPROIC ACID (VALPROIC ACID) [Suspect]
     Active Substance: VALPROIC ACID
     Indication: BIPOLAR DISORDER

REACTIONS (4)
  - Haemoglobin decreased [None]
  - Pericardial effusion [None]
  - Pleural effusion [None]
  - Pulmonary embolism [None]
